APPROVED DRUG PRODUCT: CADUET
Active Ingredient: AMLODIPINE BESYLATE; ATORVASTATIN CALCIUM
Strength: EQ 5MG BASE;EQ 20MG BASE
Dosage Form/Route: TABLET;ORAL
Application: N021540 | Product #002 | TE Code: AB
Applicant: PHARMACIA AND UPJOHN CO LLC
Approved: Jan 30, 2004 | RLD: Yes | RS: No | Type: RX